FAERS Safety Report 24558488 (Version 2)
Quarter: 2024Q4

REPORT INFORMATION
  Report Type: Spontaneous
  Country: US (occurrence: US)
  Receive Date: 20241029
  Receipt Date: 20241029
  Transmission Date: 20250114
  Serious: Yes (Death)
  Sender: ROCHE
  Company Number: US-ROCHE-10000117893

PATIENT
  Age: 83 Year
  Sex: Female

DRUGS (2)
  1. ACTEMRA ACTPEN [Suspect]
     Active Substance: TOCILIZUMAB
     Indication: Polymyalgia rheumatica
     Route: 058
     Dates: start: 202311
  2. PIRFENIDONE [Concomitant]
     Active Substance: PIRFENIDONE

REACTIONS (2)
  - Death [Fatal]
  - Off label use [Unknown]

NARRATIVE: CASE EVENT DATE: 20241009
